FAERS Safety Report 13924297 (Version 1)
Quarter: 2017Q3

REPORT INFORMATION
  Report Type: Spontaneous
  Country: US (occurrence: None)
  Receive Date: 20170824
  Receipt Date: 20170824
  Transmission Date: 20171127
  Serious: Yes (Death, Hospitalization)
  Sender: FDA-Public Use
  Company Number: None

PATIENT
  Age: 10 Year
  Sex: Female
  Weight: 34 kg

DRUGS (1)
  1. CASPOFUNGIN ACETATE. [Suspect]
     Active Substance: CASPOFUNGIN ACETATE
     Dates: end: 20160229

REACTIONS (4)
  - Adenovirus infection [None]
  - Cardiopulmonary failure [None]
  - Venoocclusive liver disease [None]
  - Viraemia [None]

NARRATIVE: CASE EVENT DATE: 20160308
